FAERS Safety Report 6569898-5 (Version None)
Quarter: 2010Q1

REPORT INFORMATION
  Report Type: 
  Country: None (occurrence: None)
  Receive Date: 20100202
  Receipt Date: 20100202
  Transmission Date: 20100710
  Serious: Yes (Hospitalization)
  Sender: FDA-Public Use
  Company Number: None

PATIENT
  Sex: Male
  Weight: 84.369 kg

DRUGS (2)
  1. CETUXIMAB 2MG/ML BMS [Suspect]
     Indication: BLADDER CANCER
     Dosage: 250 MG/M2 EVERY WEEK IV
     Route: 042
     Dates: start: 20091209, end: 20100120
  2. PLACLITAXEL [Concomitant]

REACTIONS (2)
  - DYSPNOEA [None]
  - SMALL INTESTINAL OBSTRUCTION [None]
